FAERS Safety Report 18253291 (Version 1)
Quarter: 2020Q3

REPORT INFORMATION
  Report Type: Spontaneous
  Country: US (occurrence: US)
  Receive Date: 20200910
  Receipt Date: 20200910
  Transmission Date: 20201103
  Serious: Yes (Other)
  Sender: FDA-Public Use
  Company Number: US-TEVA-2020-US-1826294

PATIENT
  Sex: Male

DRUGS (1)
  1. AUSTEDO [Suspect]
     Active Substance: DEUTETRABENAZINE
     Route: 065

REACTIONS (8)
  - Seizure [Unknown]
  - Dyskinesia [Unknown]
  - Muscle twitching [Unknown]
  - Feeling abnormal [Unknown]
  - Therapy change [Unknown]
  - Tic [Unknown]
  - Inappropriate schedule of product administration [Unknown]
  - Visual impairment [Unknown]
